FAERS Safety Report 19695414 (Version 1)
Quarter: 2021Q3

REPORT INFORMATION
  Report Type: Spontaneous
  Country: KR (occurrence: KR)
  Receive Date: 20210813
  Receipt Date: 20210813
  Transmission Date: 20211014
  Serious: Yes (Other)
  Sender: FDA-Public Use
  Company Number: KR-SUN PHARMACEUTICAL INDUSTRIES LTD-2021RR-307772

PATIENT
  Age: 86 Year
  Sex: Male

DRUGS (1)
  1. CLOPIDOGREL [Suspect]
     Active Substance: CLOPIDOGREL BISULFATE
     Indication: GASTRIC ULCER HAEMORRHAGE
     Dosage: UNK
     Route: 065

REACTIONS (3)
  - Ileal ulcer [Unknown]
  - Haemorrhage [Unknown]
  - Drug resistance [Unknown]
